FAERS Safety Report 12167955 (Version 1)
Quarter: 2016Q1

REPORT INFORMATION
  Report Type: Spontaneous
  Country: US (occurrence: None)
  Receive Date: 20160309
  Receipt Date: 20160309
  Transmission Date: 20160526
  Serious: Yes (Disabling)
  Sender: FDA-Public Use
  Company Number: None

PATIENT
  Age: 61 Year
  Sex: Female
  Weight: 47.63 kg

DRUGS (9)
  1. EPSOM SALT [Concomitant]
     Active Substance: MAGNESIUM SULFATE
  2. METABOLIC SYNERGY [Concomitant]
  3. MAGNESIUM [Concomitant]
     Active Substance: MAGNESIUM
  4. COQ10 [Concomitant]
     Active Substance: UBIDECARENONE
  5. ADVOCAL CALCIUM [Concomitant]
  6. D-3 [Concomitant]
     Active Substance: CHOLECALCIFEROL
  7. VITAMIN B12 [Concomitant]
     Active Substance: CYANOCOBALAMIN
  8. CIPROFLOXACIN HCL 500 MG TAB [Suspect]
     Active Substance: CIPROFLOXACIN HYDROCHLORIDE
     Indication: URINARY TRACT INFECTION
     Route: 048
     Dates: start: 20150515, end: 20150516
  9. MK-7 [Concomitant]

REACTIONS (8)
  - Exercise tolerance decreased [None]
  - Limb injury [None]
  - Tendonitis [None]
  - Pain [None]
  - Impaired healing [None]
  - Hypoaesthesia [None]
  - Gait disturbance [None]
  - Contusion [None]

NARRATIVE: CASE EVENT DATE: 201508
